FAERS Safety Report 17094497 (Version 2)
Quarter: 2019Q4

REPORT INFORMATION
  Report Type: Spontaneous
  Country: DE (occurrence: DE)
  Receive Date: 20191129
  Receipt Date: 20191218
  Transmission Date: 20200122
  Serious: Yes (Hospitalization)
  Sender: FDA-Public Use
  Company Number: NVSC2019DE047163

PATIENT
  Sex: Female
  Weight: 96 kg

DRUGS (5)
  1. PEGFILGRASTIM [Suspect]
     Active Substance: PEGFILGRASTIM
     Indication: BREAST CANCER
     Dosage: 6 MG (FIRST CYCLE)
     Route: 065
     Dates: start: 20190703, end: 20190703
  2. DOCETAXEL. [Suspect]
     Active Substance: DOCETAXEL
     Indication: BREAST CANCER
     Dosage: 148.5 MG, QD
     Route: 042
     Dates: start: 20190903, end: 20190903
  3. PEGFILGRASTIM [Suspect]
     Active Substance: PEGFILGRASTIM
     Dosage: 6 MG (THIRD CYCLE)
     Route: 065
     Dates: start: 20190814, end: 20190814
  4. PEGFILGRASTIM [Suspect]
     Active Substance: PEGFILGRASTIM
     Dosage: 6 MG (FOURTH CYCLE)
     Route: 065
     Dates: start: 20190904, end: 20190904
  5. PEGFILGRASTIM [Suspect]
     Active Substance: PEGFILGRASTIM
     Dosage: 6 MG (SECOND CYCLE)
     Route: 065
     Dates: start: 20190724, end: 20190724

REACTIONS (2)
  - Anaemia [Recovered/Resolved]
  - Dyspnoea exertional [Recovered/Resolved]

NARRATIVE: CASE EVENT DATE: 20190917
